FAERS Safety Report 19032246 (Version 1)
Quarter: 2021Q1

REPORT INFORMATION
  Report Type: Spontaneous
  Country: CN (occurrence: CN)
  Receive Date: 20210319
  Receipt Date: 20210319
  Transmission Date: 20210420
  Serious: Yes (Hospitalization)
  Sender: FDA-Public Use
  Company Number: CN-ASTRAZENECA-2021A159998

PATIENT
  Age: 23176 Day
  Sex: Male
  Weight: 85 kg

DRUGS (4)
  1. DAPAGLIFLOZIN. [Suspect]
     Active Substance: DAPAGLIFLOZIN
     Indication: BLOOD GLUCOSE INCREASED
     Route: 048
     Dates: start: 20210207, end: 20210215
  2. DAPAGLIFLOZIN. [Suspect]
     Active Substance: DAPAGLIFLOZIN
     Indication: BLOOD GLUCOSE INCREASED
     Route: 048
  3. INSULIN [Concomitant]
     Active Substance: INSULIN NOS
  4. LINAGLIPTIN [Concomitant]
     Active Substance: LINAGLIPTIN

REACTIONS (20)
  - Asthma [Recovering/Resolving]
  - Urine output increased [Unknown]
  - Back pain [Recovering/Resolving]
  - Drug hypersensitivity [Unknown]
  - Rash [Not Recovered/Not Resolved]
  - Pruritus [Recovering/Resolving]
  - Arthralgia [Unknown]
  - Urine abnormality [Unknown]
  - Pollakiuria [Unknown]
  - Pain in extremity [Unknown]
  - Chest discomfort [Recovering/Resolving]
  - Skin hypertrophy [Unknown]
  - Nausea [Unknown]
  - Dysuria [Unknown]
  - Pyrexia [Recovering/Resolving]
  - Asthenia [Unknown]
  - Erythema [Recovering/Resolving]
  - Nocturia [Not Recovered/Not Resolved]
  - Fatigue [Unknown]
  - Chills [Unknown]

NARRATIVE: CASE EVENT DATE: 20210212
